FAERS Safety Report 15534226 (Version 1)
Quarter: 2018Q4

REPORT INFORMATION
  Report Type: Spontaneous
  Country: PR (occurrence: PR)
  Receive Date: 20181019
  Receipt Date: 20181019
  Transmission Date: 20190205
  Serious: Yes (Life-Threatening)
  Sender: FDA-Public Use
  Company Number: None

PATIENT
  Age: 27 Year
  Sex: Male
  Weight: 47 kg

DRUGS (9)
  1. VANCOMYCIN [Concomitant]
     Active Substance: VANCOMYCIN
     Dates: start: 20180910, end: 20180920
  2. GANCICLOVIR. [Concomitant]
     Active Substance: GANCICLOVIR
     Dates: start: 20180907, end: 20180926
  3. LEVETIRACETAM. [Concomitant]
     Active Substance: LEVETIRACETAM
     Dates: start: 20180913, end: 20181001
  4. HEPARIN [Concomitant]
     Active Substance: HEPARIN SODIUM
     Dates: start: 20180914, end: 20181010
  5. LEVOFLOXAXIN [Concomitant]
     Active Substance: LEVOFLOXACIN
     Dates: start: 20180914, end: 20180927
  6. AZTREONAM. [Suspect]
     Active Substance: AZTREONAM
     Indication: PNEUMONIA
     Route: 040
     Dates: start: 20180914, end: 20180917
  7. METHYLPREDNISOLONE. [Concomitant]
     Active Substance: METHYLPREDNISOLONE
     Dates: start: 20180910, end: 20180921
  8. PANTOPRAZOLE [Concomitant]
     Active Substance: PANTOPRAZOLE
     Dates: start: 20180910, end: 20180930
  9. CLEVIDIPINE [Concomitant]
     Active Substance: CLEVIDIPINE
     Dates: start: 20180913, end: 20180917

REACTIONS (1)
  - Transaminases increased [None]

NARRATIVE: CASE EVENT DATE: 20180917
